FAERS Safety Report 8739607 (Version 2)
Quarter: 2013Q4

REPORT INFORMATION
  Report Type: Spontaneous
  Country: CZ (occurrence: CZ)
  Receive Date: 20120823
  Receipt Date: 20131101
  Transmission Date: 20140711
  Serious: Yes (Other)
  Sender: FDA-Public Use
  Company Number: CZ-GLAXOSMITHKLINE-B0784313A

PATIENT
  Age: 76 Year
  Sex: Male

DRUGS (5)
  1. VOTRIENT [Suspect]
     Indication: RENAL CANCER
     Dosage: 400MG PER DAY
     Route: 048
     Dates: start: 20111228
  2. DIGOXIN [Concomitant]
  3. METOPROLOL [Concomitant]
  4. RAMIPRIL [Concomitant]
  5. HYDROCHLOROTHIAZIDE [Concomitant]

REACTIONS (11)
  - Cardiac failure [Recovered/Resolved]
  - Atrial fibrillation [Unknown]
  - Anal fissure [Unknown]
  - Dyspnoea [Unknown]
  - Asthenia [Unknown]
  - Diarrhoea [Unknown]
  - Hypertension [Recovered/Resolved]
  - Left ventricular dysfunction [Unknown]
  - Ejection fraction [Unknown]
  - Decreased appetite [Unknown]
  - Weight decreased [Unknown]
